FAERS Safety Report 25132763 (Version 1)
Quarter: 2025Q1

REPORT INFORMATION
  Report Type: Spontaneous
  Country: SK (occurrence: SK)
  Receive Date: 20250328
  Receipt Date: 20250328
  Transmission Date: 20250409
  Serious: Yes (Life-Threatening, Hospitalization, Other)
  Sender: JOHNSON AND JOHNSON
  Company Number: SK-ZENTIVA-2025-ZT-030819

PATIENT
  Age: 16 Year
  Sex: Male

DRUGS (1)
  1. RISPERDAL [Suspect]
     Active Substance: RISPERIDONE
     Indication: Product used for unknown indication

REACTIONS (12)
  - Ileus paralytic [Unknown]
  - Altered state of consciousness [Unknown]
  - Malaise [Unknown]
  - Abdominal distension [Unknown]
  - Petechiae [Unknown]
  - Abdominal tenderness [Unknown]
  - Vomiting [Unknown]
  - Nausea [Unknown]
  - Tachypnoea [Unknown]
  - Blood pressure immeasurable [Unknown]
  - Pallor [Unknown]
  - Cyanosis [Unknown]
